FAERS Safety Report 23650400 (Version 1)
Quarter: 2024Q1

REPORT INFORMATION
  Report Type: Spontaneous
  Country: JP (occurrence: JP)
  Receive Date: 20240320
  Receipt Date: 20240320
  Transmission Date: 20240410
  Serious: Yes (Hospitalization)
  Sender: FDA-Public Use
  Company Number: JP-ABBVIE-5676861

PATIENT

DRUGS (1)
  1. RINVOQ [Suspect]
     Active Substance: UPADACITINIB
     Indication: Rheumatoid arthritis
     Route: 048

REACTIONS (24)
  - Urinary tract infection [Unknown]
  - Herpes zoster [Unknown]
  - Aspartate aminotransferase increased [Unknown]
  - Malaise [Unknown]
  - Stomatitis [Unknown]
  - Pyrexia [Unknown]
  - COVID-19 [Unknown]
  - Blood albumin decreased [Unknown]
  - Blood creatine phosphokinase increased [Unknown]
  - Blood cholesterol increased [Unknown]
  - Hepatic enzyme increased [Unknown]
  - Neutrophil count decreased [Unknown]
  - Pyrexia [Unknown]
  - Lymphocyte count decreased [Unknown]
  - Upper respiratory tract inflammation [Unknown]
  - Haemoglobin decreased [Unknown]
  - Infection [Unknown]
  - Subcutaneous abscess [Unknown]
  - Oral herpes [Unknown]
  - Blood albumin increased [Unknown]
  - Bronchitis [Unknown]
  - Unevaluable event [Unknown]
  - Unevaluable event [Unknown]
  - Unevaluable event [Unknown]
